FAERS Safety Report 13203487 (Version 1)
Quarter: 2017Q1

REPORT INFORMATION
  Report Type: Spontaneous
  Country: US (occurrence: US)
  Receive Date: 20170208
  Receipt Date: 20170208
  Transmission Date: 20170428
  Serious: No
  Sender: FDA-Public Use
  Company Number: US-AMGEN-USASP2016095481

PATIENT
  Age: 48 Year
  Sex: Female
  Weight: 62.59 kg

DRUGS (1)
  1. NEULASTA [Suspect]
     Active Substance: PEGFILGRASTIM
     Indication: PRODUCT USED FOR UNKNOWN INDICATION
     Dosage: 6 MG, Q 21 DAYS
     Route: 058

REACTIONS (4)
  - Application site pruritus [Unknown]
  - Application site erythema [Unknown]
  - Erythema [Unknown]
  - Influenza [Unknown]

NARRATIVE: CASE EVENT DATE: 20160701
